FAERS Safety Report 4991281-4 (Version None)
Quarter: 2006Q2

REPORT INFORMATION
  Report Type: 
  Country: None (occurrence: None)
  Receive Date: 20060428
  Receipt Date: 20060417
  Transmission Date: 20061013
  Serious: Yes (Other)
  Sender: FDA-Public Use
  Company Number: 2006051993

PATIENT
  Age: 67 Year
  Sex: Female

DRUGS (18)
  1. LIPITOR [Suspect]
     Indication: ILL-DEFINED DISORDER
     Dates: end: 20060201
  2. GALENIC/FLUTICASONE/SALMETEROL/ (FLUTICASONE, SALMETEROL) [Suspect]
     Indication: ASTHMA
     Dosage: 1 PUFF TWICE DAILY, INHALATION
     Route: 055
     Dates: start: 20020101
  3. BENICAR [Concomitant]
  4. TOPROL-XL [Concomitant]
  5. LASIX [Concomitant]
  6. MAXZIDE (HYROCHLOROTHIAZIDE, TRIAMTERENE) [Concomitant]
  7. ALLEGRA [Concomitant]
  8. MONTELUKAST SODIUM (MONTELUKAST SODIUM) [Concomitant]
  9. ZETIA [Concomitant]
  10. MUCINEX (GUAIFENESIN) [Concomitant]
  11. PROMETHAZINE HYDROCHLORIDE TAB [Concomitant]
  12. ASPIRIN [Concomitant]
  13. ACETAMINOPHEN AND TRAMADOL HCL [Concomitant]
  14. CHONDROITIN/KGLUCOSAMINE (CHONDROITIN, GLUCOSAMINE) [Concomitant]
  15. METHYLSULFONYLMETHANE (METHYLSULFONYLMETHANE) [Concomitant]
  16. ALBUTEROL [Concomitant]
  17. MULTIVITAMIN [Concomitant]
  18. NASONEX [Concomitant]

REACTIONS (7)
  - CEREBROVASCULAR ACCIDENT [None]
  - COUGH [None]
  - MEMORY IMPAIRMENT [None]
  - MUSCLE SPASMS [None]
  - NASOPHARYNGITIS [None]
  - PNEUMONIA VIRAL [None]
  - TRANSIENT ISCHAEMIC ATTACK [None]
